FAERS Safety Report 12619454 (Version 2)
Quarter: 2016Q3

REPORT INFORMATION
  Report Type: Spontaneous
  Country: US (occurrence: US)
  Receive Date: 20160803
  Receipt Date: 20160901
  Transmission Date: 20161109
  Serious: No
  Sender: FDA-Public Use
  Company Number: US-PFIZER INC-2016300596

PATIENT
  Age: 61 Year
  Sex: Female

DRUGS (2)
  1. IBRANCE [Suspect]
     Active Substance: PALBOCICLIB
     Indication: NEOPLASM MALIGNANT
     Dosage: 100 MG, CYCLIC (TAKE 1CAPSULE ON DAYS 1-21 WITH 7 DAYS OFF)/TAKE THE MEDICATION AROUND 7.30PM DAILY)
     Route: 048
     Dates: start: 20160226
  2. FEMARA [Concomitant]
     Active Substance: LETROZOLE
     Dosage: 2.5 MG, UNK

REACTIONS (4)
  - Drug dose omission [Unknown]
  - Rash [Recovered/Resolved]
  - Nausea [Unknown]
  - Ulcer [Unknown]
